FAERS Safety Report 5813433-3 (Version None)
Quarter: 2008Q3

REPORT INFORMATION
  Report Type: 
  Country: None (occurrence: None)
  Receive Date: 20080715
  Receipt Date: 20080715
  Transmission Date: 20090109
  Serious: Yes (Hospitalization)
  Sender: FDA-Public Use
  Company Number: None

PATIENT
  Age: 61 Year
  Sex: Male
  Weight: 103.87 kg

DRUGS (3)
  1. MYCOPHENOLATE MOFETIL [Suspect]
     Indication: TRANSPLANT
     Dosage: 1000 MG
     Dates: end: 20080320
  2. MYCOPHENOLATE MOFETIL [Suspect]
     Indication: VASCULAR OPERATION
     Dosage: 1000 MG
     Dates: end: 20080320
  3. SIROLIMUS [Suspect]
     Indication: TRANSPLANT
     Dates: start: 20070529

REACTIONS (9)
  - ADRENAL INSUFFICIENCY [None]
  - CYTOMEGALOVIRUS COLITIS [None]
  - DIARRHOEA [None]
  - GASTRIC DILATATION [None]
  - HYPOKALAEMIA [None]
  - HYPOVOLAEMIA [None]
  - ILEUS [None]
  - RENAL FAILURE ACUTE [None]
  - VIRAL INFECTION [None]
